FAERS Safety Report 4561640-2 (Version None)
Quarter: 2005Q1

REPORT INFORMATION
  Report Type: 
  Country: None (occurrence: None)
  Receive Date: 20050126
  Receipt Date: 20050120
  Transmission Date: 20050727
  Serious: Yes (Other)
  Sender: FDA-Public Use
  Company Number: GB-GLAXOSMITHKLINE-B0365277A

PATIENT
  Sex: Male

DRUGS (2)
  1. NARAMIG [Suspect]
     Indication: MIGRAINE
     Dosage: 2TAB PER DAY
     Route: 065
     Dates: start: 20041001
  2. NO CONCURRENT MEDICATION [Concomitant]

REACTIONS (3)
  - DRUG ABUSER [None]
  - MEDICATION ERROR [None]
  - OVERDOSE [None]
